FAERS Safety Report 5708317-5 (Version None)
Quarter: 2008Q2

REPORT INFORMATION
  Report Type: 
  Country: None (occurrence: None)
  Receive Date: 20080414
  Receipt Date: 20080328
  Transmission Date: 20081010
  Serious: Yes (Death)
  Sender: FDA-Public Use
  Company Number: DSA_31670_2008

PATIENT
  Sex: Male

DRUGS (12)
  1. TEMESTA [Suspect]
     Indication: ANXIETY DISORDER
     Dosage: 1 MG BID ORAL, 3.5 MG QD ORAL, 5 MG QD ORAL
     Route: 048
     Dates: start: 20070227, end: 20070228
  2. TEMESTA [Suspect]
     Indication: ANXIETY DISORDER
     Dosage: 1 MG BID ORAL, 3.5 MG QD ORAL, 5 MG QD ORAL
     Route: 048
     Dates: start: 20070301, end: 20070301
  3. TEMESTA [Suspect]
     Indication: ANXIETY DISORDER
     Dosage: 1 MG BID ORAL, 3.5 MG QD ORAL, 5 MG QD ORAL
     Route: 048
     Dates: start: 20070302
  4. METHADONE HCL [Suspect]
     Indication: DRUG ABUSER
     Dosage: 15 MG BID ORAL, 80 MG QD ORAL
     Route: 048
     Dates: end: 20070101
  5. METHADONE HCL [Suspect]
     Indication: DRUG ABUSER
     Dosage: 15 MG BID ORAL, 80 MG QD ORAL
     Route: 048
     Dates: start: 20070302, end: 20070302
  6. METHADONE HCL [Suspect]
     Indication: DRUG ABUSER
     Dosage: 15 MG BID ORAL, 80 MG QD ORAL
     Route: 048
     Dates: start: 20070303, end: 20070303
  7. METHOTRIMEPRAZINE /00038601/ (NOZINAN - LEVOMEPROMAZINE) [Suspect]
     Dosage: 25 MG QD ORAL
     Route: 048
     Dates: start: 20070130, end: 20070303
  8. REMERON [Suspect]
     Indication: DEPRESSION
     Dosage: 20 MG QD ORAL, 30 MG QD ORAL
     Route: 048
     Dates: end: 20070226
  9. REMERON [Suspect]
     Indication: DEPRESSION
     Dosage: 20 MG QD ORAL, 30 MG QD ORAL
     Route: 048
     Dates: start: 20070227, end: 20070303
  10. ZYPREXA [Suspect]
     Dosage: 20 MG QD ORAL
     Route: 048
     Dates: start: 20070130, end: 20070303
  11. NICOTINELL [Concomitant]
  12. DAFALGAN [Concomitant]

REACTIONS (10)
  - ASPIRATION BRONCHIAL [None]
  - DEPRESSED LEVEL OF CONSCIOUSNESS [None]
  - DRUG INTERACTION [None]
  - DRUG LEVEL INCREASED [None]
  - DRUG WITHDRAWAL SYNDROME [None]
  - ELECTROCARDIOGRAM QT PROLONGED [None]
  - HEADACHE [None]
  - LOSS OF CONSCIOUSNESS [None]
  - RESPIRATORY ARREST [None]
  - SOMNOLENCE [None]
